FAERS Safety Report 8731416 (Version 4)
Quarter: 2012Q4

REPORT INFORMATION
  Report Type: 
  Country: JP (occurrence: JP)
  Receive Date: 20120820
  Receipt Date: 20121018
  Transmission Date: 20130627
  Serious: Yes (Disabling, Other)
  Sender: FDA-Public Use
  Company Number: JP-JNJFOC-20120807150

PATIENT
  Age: 33 Year
  Sex: Male

DRUGS (9)
  1. RISPERDAL [Suspect]
     Indication: PRODUCT USED FOR UNKNOWN INDICATION
     Route: 048
     Dates: start: 200412, end: 200608
  2. RISPERDAL [Suspect]
     Indication: PRODUCT USED FOR UNKNOWN INDICATION
     Route: 048
     Dates: start: 200412, end: 200607
  3. RISPERDAL [Suspect]
     Indication: PRODUCT USED FOR UNKNOWN INDICATION
     Route: 048
     Dates: start: 200608, end: 200610
  4. MANY OTHER UNSPECIFIED MEDICATIONS [Suspect]
     Indication: PRODUCT USED FOR UNKNOWN INDICATION
     Route: 065
  5. TASMOLIN [Concomitant]
     Route: 048
  6. SILECE [Concomitant]
     Route: 048
  7. SEROQUEL [Concomitant]
     Route: 048
  8. ZYPREXA [Concomitant]
     Route: 048
  9. ABILIFY [Concomitant]
     Route: 048

REACTIONS (2)
  - Tardive dyskinesia [Not Recovered/Not Resolved]
  - Dystonia [Not Recovered/Not Resolved]
